FAERS Safety Report 13961545 (Version 4)
Quarter: 2019Q3

REPORT INFORMATION
  Report Type: Spontaneous
  Country: SE (occurrence: SE)
  Receive Date: 20170912
  Receipt Date: 20190923
  Transmission Date: 20191004
  Serious: Yes (Death, Life-Threatening, Other)
  Sender: FDA-Public Use
  Company Number: SE-MYLANLABS-2017M1055957

PATIENT
  Age: 74 Year
  Sex: Male

DRUGS (1)
  1. LAFUNOMYL 10 MG DEPOTTABLETTER [Suspect]
     Active Substance: ALFUZOSIN HYDROCHLORIDE
     Indication: PROSTATOMEGALY
     Dosage: 10 MG, QD
     Route: 048
     Dates: start: 201704, end: 201707

REACTIONS (2)
  - Arrhythmia [Fatal]
  - Cardiac arrest [Fatal]

NARRATIVE: CASE EVENT DATE: 20170707
